FAERS Safety Report 18832516 (Version 1)
Quarter: 2021Q1

REPORT INFORMATION
  Report Type: Spontaneous
  Country: NL (occurrence: NL)
  Receive Date: 20210203
  Receipt Date: 20210203
  Transmission Date: 20210419
  Serious: Yes (Life-Threatening, Hospitalization)
  Sender: FDA-Public Use
  Company Number: NL-TEVA-2021-NL-1874451

PATIENT
  Sex: Male

DRUGS (3)
  1. NICOTINE. [Concomitant]
     Active Substance: NICOTINE
     Indication: PRODUCT USED FOR UNKNOWN INDICATION
     Route: 065
  2. TRAMADOL. [Suspect]
     Active Substance: TRAMADOL
     Indication: INTENTIONAL OVERDOSE
     Dosage: APPROXIMATELY 3000MG
     Route: 048
  3. LIDOCAINE. [Concomitant]
     Active Substance: LIDOCAINE
     Indication: SUPPORTIVE CARE
     Dosage: AS LUBRICANT FOR INTUBATION
     Route: 048

REACTIONS (3)
  - Toxicity to various agents [Unknown]
  - Loss of consciousness [Unknown]
  - Intentional overdose [Unknown]
